FAERS Safety Report 7784798-0 (Version None)
Quarter: 2011Q3

REPORT INFORMATION
  Report Type: 
  Country: None (occurrence: None)
  Receive Date: 20110928
  Receipt Date: 20110922
  Transmission Date: 20111222
  Serious: Yes (Hospitalization)
  Sender: FDA-Public Use
  Company Number: US-AMGEN-USASP2011049154

PATIENT
  Age: 45 Year
  Sex: Male

DRUGS (17)
  1. NEUPOGEN [Suspect]
     Indication: STEM CELL TRANSPLANT
     Dates: start: 20110917, end: 20110918
  2. CELEXA [Concomitant]
  3. ALLOPURINOL [Concomitant]
  4. LEVAQUIN [Concomitant]
  5. OXYCODONE [Concomitant]
  6. LACTULOSE [Concomitant]
  7. ACYCLOVIR [Concomitant]
  8. OMEPRAZOLE [Concomitant]
  9. SARNA HC [Concomitant]
  10. SENOKOT [Concomitant]
  11. ZOFRAN [Concomitant]
  12. MS CONTIN [Concomitant]
  13. LOTEPREDNOL [Concomitant]
  14. KLONOPIN [Concomitant]
  15. FLUCONAZOLE [Concomitant]
  16. MIRALAX [Concomitant]
  17. COMPAZINE [Concomitant]

REACTIONS (2)
  - PERICARDITIS [None]
  - ENDOCARDITIS [None]
